FAERS Safety Report 4440811-X (Version None)
Quarter: 2004Q3

REPORT INFORMATION
  Report Type: 
  Country: None (occurrence: None)
  Receive Date: 20040827
  Receipt Date: 20040203
  Transmission Date: 20050211
  Serious: Yes (Hospitalization, Other)
  Sender: FDA-Public Use
  Company Number: 001-0719-M0100293

PATIENT
  Age: 48 Year
  Sex: Male

DRUGS (2)
  1. LOPID [Suspect]
     Indication: BLOOD CHOLESTEROL INCREASED
     Dates: start: 20010627
  2. BAYCOL [Suspect]
     Indication: BLOOD CHOLESTEROL ABNORMAL
     Dosage: 0.8 MG (DAILY), ORAL
     Route: 048
     Dates: start: 20010301, end: 20010810

REACTIONS (7)
  - ADVERSE DRUG REACTION [None]
  - ARTHROPATHY [None]
  - ASTHENIA [None]
  - BLOOD CREATINE PHOSPHOKINASE INCREASED [None]
  - HEPATIC ENZYME INCREASED [None]
  - MYALGIA [None]
  - RENAL DISORDER [None]
